FAERS Safety Report 4728719-3 (Version None)
Quarter: 2005Q3

REPORT INFORMATION
  Report Type: 
  Country: None (occurrence: None)
  Receive Date: 20050729
  Receipt Date: 20050624
  Transmission Date: 20060218
  Serious: Yes (Other)
  Sender: FDA-Public Use
  Company Number: 2005UW09622

PATIENT
  Age: 15130 Day
  Sex: Female
  Weight: 70 kg

DRUGS (7)
  1. SEROQUEL [Suspect]
     Indication: ANXIETY
     Route: 048
  2. DOXEPIN HCL [Interacting]
     Indication: ANXIETY
  3. DOXEPIN HCL [Interacting]
  4. DOXEPIN HCL [Interacting]
     Dosage: REDUCED
  5. LAMICTAL [Concomitant]
     Indication: AFFECTIVE DISORDER
     Route: 048
  6. PRILOSEC [Concomitant]
     Indication: GASTROOESOPHAGEAL REFLUX DISEASE
     Route: 048
  7. TOPROL-XL [Concomitant]
     Indication: HYPERTENSION
     Route: 048

REACTIONS (4)
  - DEPRESSION [None]
  - DRUG INTERACTION [None]
  - ELECTROCARDIOGRAM QT PROLONGED [None]
  - MOOD ALTERED [None]
